FAERS Safety Report 14893901 (Version 2)
Quarter: 2018Q3

REPORT INFORMATION
  Report Type: Spontaneous
  Country: FR (occurrence: FR)
  Receive Date: 20180514
  Receipt Date: 20180829
  Transmission Date: 20181010
  Serious: Yes (Death, Hospitalization)
  Sender: FDA-Public Use
  Company Number: FR-EXELIXIS-CABO-18013541

PATIENT
  Age: 71 Year
  Sex: Male
  Weight: 51 kg

DRUGS (8)
  1. CABOMETYX [Suspect]
     Active Substance: CABOZANTINIB S-MALATE
     Dosage: 20 MG, QD
     Route: 048
  2. KARDEGIC [Concomitant]
     Active Substance: ASPIRIN DL-LYSINE
  3. CABOMETYX [Suspect]
     Active Substance: CABOZANTINIB S-MALATE
     Dosage: 20 MG, QD
     Dates: start: 20180221, end: 20180325
  4. BISOPROLOL [Concomitant]
     Active Substance: BISOPROLOL
  5. CABOMETYX [Suspect]
     Active Substance: CABOZANTINIB S-MALATE
     Indication: RENAL CELL CARCINOMA
     Dosage: 60 MG, QD
     Route: 048
     Dates: start: 20171102, end: 20180326
  6. CABOMETYX [Suspect]
     Active Substance: CABOZANTINIB S-MALATE
     Dosage: 40 MG, QD
     Route: 048
  7. TRIATEC [Concomitant]
  8. AMLOR [Concomitant]
     Active Substance: AMLODIPINE BESYLATE

REACTIONS (10)
  - General physical health deterioration [Recovered/Resolved]
  - Inflammation [Unknown]
  - Vomiting [Fatal]
  - Oral candidiasis [Recovered/Resolved]
  - Hypertension [Recovered/Resolved]
  - Oral disorder [Recovered/Resolved]
  - Cancer pain [Recovering/Resolving]
  - Stomatitis [Recovered/Resolved]
  - Large intestine perforation [Fatal]
  - Abdominal pain [Fatal]

NARRATIVE: CASE EVENT DATE: 201711
